FAERS Safety Report 4829336-7 (Version None)
Quarter: 2005Q4

REPORT INFORMATION
  Report Type: 
  Country: None (occurrence: None)
  Receive Date: 20051115
  Receipt Date: 20051115
  Transmission Date: 20060501
  Serious: Yes (Hospitalization)
  Sender: FDA-Public Use
  Company Number: None

PATIENT
  Sex: Male
  Weight: 112.4921 kg

DRUGS (5)
  1. TERAZOSIN   10MG [Suspect]
     Indication: BENIGN PROSTATIC HYPERPLASIA
     Dosage: 10MG   DAILY AT BEDTIME  PO
     Route: 048
     Dates: start: 20010322, end: 20050731
  2. HYDROCHLOROTHIAZIDE [Concomitant]
  3. SIMVASTATIN [Concomitant]
  4. INSULIN ASPART [Concomitant]
  5. NPH INSULIN [Concomitant]

REACTIONS (4)
  - FALL [None]
  - ORTHOSTATIC HYPOTENSION [None]
  - RIB FRACTURE [None]
  - SYNCOPE [None]
